FAERS Safety Report 5767016-4 (Version None)
Quarter: 2008Q2

REPORT INFORMATION
  Report Type: 
  Country: None (occurrence: None)
  Receive Date: 20080609
  Receipt Date: 20080603
  Transmission Date: 20081010
  Serious: Yes (Life-Threatening, Hospitalization, Other)
  Sender: FDA-Public Use
  Company Number: 2008SP010558

PATIENT
  Age: 58 Year
  Sex: Female

DRUGS (14)
  1. TEMODAR [Suspect]
     Indication: HEPATIC NEOPLASM MALIGNANT
     Dosage: 200 MG/M2; QD; PO;  150 MG/M2; QD; PO
     Route: 048
     Dates: start: 20080513, end: 20080515
  2. TEMODAR [Suspect]
     Indication: HEPATIC NEOPLASM MALIGNANT
     Dosage: 200 MG/M2; QD; PO;  150 MG/M2; QD; PO
     Route: 048
     Dates: start: 20080402
  3. ABT-88 [Suspect]
     Indication: HEPATIC NEOPLASM MALIGNANT
     Dosage: 80 MG; BID; PO;  40 MG; BID; PO
     Route: 048
     Dates: start: 20080513, end: 20080515
  4. ABT-88 [Suspect]
     Indication: HEPATIC NEOPLASM MALIGNANT
     Dosage: 80 MG; BID; PO;  40 MG; BID; PO
     Route: 048
     Dates: start: 20080402
  5. SORAFENIB [Concomitant]
  6. TYLENOL PM [Concomitant]
  7. IMODIUM [Concomitant]
  8. HYDROCODONE [Concomitant]
  9. METOCLOPRAMIDE [Concomitant]
  10. ONDANSETRON [Concomitant]
  11. DIPHENHYDRAMINE HYDROCHLORIDE [Concomitant]
  12. OMEPRAZOLE [Concomitant]
  13. LANSOPRAZOLE [Concomitant]
  14. ASPIRIN [Concomitant]

REACTIONS (16)
  - ASTHENIA [None]
  - DEHYDRATION [None]
  - DISEASE PROGRESSION [None]
  - FEELING ABNORMAL [None]
  - HEADACHE [None]
  - HYPOVOLAEMIA [None]
  - NAUSEA [None]
  - NEUTROPENIA [None]
  - ORAL INTAKE REDUCED [None]
  - PULMONARY EMBOLISM [None]
  - PYREXIA [None]
  - TACHYCARDIA [None]
  - THERAPEUTIC AGENT TOXICITY [None]
  - THROMBOCYTOPENIA [None]
  - VOMITING [None]
  - WHITE BLOOD CELL COUNT DECREASED [None]
